FAERS Safety Report 6847965-6 (Version None)
Quarter: 2010Q3

REPORT INFORMATION
  Report Type: 
  Country: None (occurrence: None)
  Receive Date: 20100716
  Receipt Date: 20100708
  Transmission Date: 20110219
  Serious: Yes (Hospitalization)
  Sender: FDA-Public Use
  Company Number: B0665585A

PATIENT
  Age: 32 Year
  Sex: Female
  Weight: 85 kg

DRUGS (1)
  1. ALLI [Suspect]
     Indication: OBESITY
     Route: 048
     Dates: start: 20100519, end: 20100526

REACTIONS (6)
  - ANGIOEDEMA [None]
  - BRONCHOSPASM [None]
  - DYSPNOEA [None]
  - ERYTHEMA [None]
  - HYPERSENSITIVITY [None]
  - SKIN WARM [None]
